FAERS Safety Report 17805331 (Version 2)
Quarter: 2022Q2

REPORT INFORMATION
  Report Type: Spontaneous
  Country: US (occurrence: US)
  Receive Date: 20200519
  Receipt Date: 20220520
  Transmission Date: 20220721
  Serious: No
  Sender: FDA-Public Use
  Company Number: US-PFIZER INC-2018409542

PATIENT
  Age: 74 Year
  Sex: Male

DRUGS (3)
  1. EUCRISA [Suspect]
     Active Substance: CRISABOROLE
     Indication: Dermatitis atopic
     Dosage: UNK, APPLIED TO AFFECTED AREAS, TWICE DAILY
     Dates: start: 1980
  2. EUCRISA [Suspect]
     Active Substance: CRISABOROLE
     Indication: Eczema
     Dosage: UNK, APPLIED TO AFFECTED AREAS, TWICE A DAY, AS NEEDED TO RASH
  3. EUCRISA [Suspect]
     Active Substance: CRISABOROLE
     Dosage: UNK, 2X/DAY (APPLY TOPICALLY TO AFFECTED AREA(S) A THIN LAYER TWICE DAILY FOR 6 MONTHS)
     Route: 061

REACTIONS (3)
  - Therapeutic product effect incomplete [Unknown]
  - Poor quality product administered [Unknown]
  - Product physical issue [Unknown]
